FAERS Safety Report 9100191 (Version 1)
Quarter: 2013Q1

REPORT INFORMATION
  Report Type: Report from Study
  Country: US (occurrence: US)
  Receive Date: 20130215
  Receipt Date: 20130215
  Transmission Date: 20140127
  Serious: Yes (Death)
  Sender: FDA-Public Use
  Company Number: US-ROCHE-1189766

PATIENT
  Age: 45 Year
  Sex: Male

DRUGS (3)
  1. RITUXIMAB [Suspect]
     Indication: STEM CELL TRANSPLANT
     Route: 065
  2. FLUDARABINE [Concomitant]
  3. BUSULFAN [Concomitant]

REACTIONS (1)
  - Death [Fatal]
